FAERS Safety Report 20584198 (Version 3)
Quarter: 2022Q1

REPORT INFORMATION
  Report Type: Spontaneous
  Country: CA (occurrence: CA)
  Receive Date: 20220311
  Receipt Date: 20220323
  Transmission Date: 20220423
  Serious: Yes (Other)
  Sender: FDA-Public Use
  Company Number: CA-AMERICAN REGENT INC-2021003418

PATIENT
  Sex: Female

DRUGS (2)
  1. VENOFER [Suspect]
     Active Substance: IRON SUCROSE
     Indication: Anaemia
     Dosage: 300 MILLIGRAM, FIRST DOSE
     Route: 065
  2. VENOFER [Suspect]
     Active Substance: IRON SUCROSE
     Dosage: 300 MG IN 250 ML, SECOND DOSE
     Route: 042
     Dates: start: 20211215, end: 20211215

REACTIONS (8)
  - Peripheral coldness [Unknown]
  - Burning sensation [Unknown]
  - Erythema [Unknown]
  - Paraesthesia [Unknown]
  - Rash macular [Unknown]
  - Urticaria [Unknown]
  - Incorrect product administration duration [Unknown]
  - Product quality issue [Unknown]

NARRATIVE: CASE EVENT DATE: 20211215
